FAERS Safety Report 4413117-2 (Version None)
Quarter: 2004Q3

REPORT INFORMATION
  Report Type: 
  Country: None (occurrence: None)
  Receive Date: 20040802
  Receipt Date: 20040802
  Transmission Date: 20050211
  Serious: Yes (Disabling)
  Sender: FDA-Public Use
  Company Number: None

PATIENT
  Age: 28 Year
  Sex: Female
  Weight: 48.5349 kg

DRUGS (1)
  1. ZOLOFT [Suspect]
     Dosage: 1 DAY ORAL
     Route: 048

REACTIONS (7)
  - AGGRESSION [None]
  - AGITATION [None]
  - CONFUSIONAL STATE [None]
  - DIARRHOEA [None]
  - NAUSEA [None]
  - PERSONALITY CHANGE [None]
  - VOMITING [None]
